FAERS Safety Report 15686230 (Version 4)
Quarter: 2018Q4

REPORT INFORMATION
  Report Type: Report from Study
  Country: US (occurrence: US)
  Receive Date: 20181204
  Receipt Date: 20181231
  Transmission Date: 20190205
  Serious: No
  Sender: FDA-Public Use
  Company Number: PHEH2018US050027

PATIENT
  Sex: Female

DRUGS (2)
  1. COSENTYX [Suspect]
     Active Substance: SECUKINUMAB
     Dosage: 300 MG, QW
     Route: 058
  2. COSENTYX [Suspect]
     Active Substance: SECUKINUMAB
     Indication: PSORIATIC ARTHROPATHY
     Dosage: 150 MG, QW
     Route: 058

REACTIONS (6)
  - Swelling [Recovered/Resolved]
  - Drug ineffective [Unknown]
  - Glucose tolerance impaired [Unknown]
  - Pain [Unknown]
  - Psoriasis [Recovered/Resolved]
  - Arthralgia [Recovered/Resolved]
